FAERS Safety Report 23735087 (Version 1)
Quarter: 2024Q2

REPORT INFORMATION
  Report Type: Spontaneous
  Country: IT (occurrence: IT)
  Receive Date: 20240412
  Receipt Date: 20240412
  Transmission Date: 20240716
  Serious: Yes (Hospitalization, Other)
  Sender: FDA-Public Use
  Company Number: IT-HIKMA PHARMACEUTICALS-IT-H14001-24-02915

PATIENT
  Age: 43 Year
  Sex: Female

DRUGS (6)
  1. CARBOPLATIN [Suspect]
     Active Substance: CARBOPLATIN
     Indication: Metastases to peritoneum
     Dosage: AUC 5 I.V. EVERY THREE WEEKS
     Route: 042
     Dates: start: 2022, end: 2022
  2. CARBOPLATIN [Suspect]
     Active Substance: CARBOPLATIN
     Indication: Lung adenocarcinoma
  3. CARBOPLATIN [Suspect]
     Active Substance: CARBOPLATIN
     Indication: Metastases to liver
  4. PEMETREXED [Suspect]
     Active Substance: PEMETREXED
     Indication: Lung adenocarcinoma
     Dosage: 500 MILLIGRAM/SQ. METER
     Route: 042
     Dates: start: 2022, end: 2022
  5. PEMETREXED [Suspect]
     Active Substance: PEMETREXED
     Indication: Metastases to liver
  6. PEMETREXED [Suspect]
     Active Substance: PEMETREXED
     Indication: Metastases to peritoneum

REACTIONS (1)
  - Infusion related reaction [Unknown]

NARRATIVE: CASE EVENT DATE: 20220101
